FAERS Safety Report 5414912-3 (Version None)
Quarter: 2007Q3

REPORT INFORMATION
  Report Type: 
  Country: None (occurrence: None)
  Receive Date: 20070813
  Receipt Date: 20070813
  Transmission Date: 20080115
  Serious: Yes (Other)
  Sender: FDA-Public Use
  Company Number: None

PATIENT
  Sex: Female

DRUGS (1)
  1. BUPROPION HCL [Suspect]
     Dosage: 300MG ONE DAILY PO
     Route: 048
     Dates: start: 20070719

REACTIONS (2)
  - PRURITUS [None]
  - RASH [None]
